FAERS Safety Report 16107454 (Version 1)
Quarter: 2019Q1

REPORT INFORMATION
  Report Type: Spontaneous
  Country: FR (occurrence: FR)
  Receive Date: 20190322
  Receipt Date: 20190322
  Transmission Date: 20190418
  Serious: Yes (Death)
  Sender: FDA-Public Use
  Company Number: FR-AVERITAS PHARMA, INC.-2019-12664

PATIENT
  Age: 63 Year
  Sex: Male
  Weight: 58 kg

DRUGS (2)
  1. DARZALEX [Suspect]
     Active Substance: DARATUMUMAB
     Indication: PLASMA CELL MYELOMA
     Dosage: 16 MG/KG, UNK
     Route: 041
     Dates: start: 201707, end: 20181003
  2. QUTENZA [Suspect]
     Active Substance: CAPSAICIN
     Indication: PAIN
     Dosage: 1 DF, ONCE
     Route: 003
     Dates: start: 20181108, end: 20181108

REACTIONS (2)
  - Back pain [Fatal]
  - Pain [Fatal]

NARRATIVE: CASE EVENT DATE: 20181108
